FAERS Safety Report 21297345 (Version 1)
Quarter: 2022Q3

REPORT INFORMATION
  Report Type: Spontaneous
  Country: US (occurrence: US)
  Receive Date: 20220906
  Receipt Date: 20220906
  Transmission Date: 20221027
  Serious: Yes (Other)
  Sender: FDA-Public Use
  Company Number: US-MYLANLABS-2022M1090775

PATIENT
  Age: 59 Year
  Sex: Female

DRUGS (5)
  1. DOXYCYCLINE [Suspect]
     Active Substance: DOXYCYCLINE
     Indication: Pemphigoid
     Dosage: 100 MILLIGRAM, BID
     Route: 048
  2. DAPSONE [Suspect]
     Active Substance: DAPSONE
     Indication: Pemphigoid
     Dosage: 75 MILLIGRAM, QD
     Route: 048
  3. BETAMETHASONE [Suspect]
     Active Substance: BETAMETHASONE
     Indication: Pemphigoid
     Dosage: UNK
     Route: 061
  4. TRIAMCINOLONE [Suspect]
     Active Substance: TRIAMCINOLONE
     Indication: Pemphigoid
     Dosage: UNK
     Route: 061
  5. NIACINAMIDE [Suspect]
     Active Substance: NIACINAMIDE
     Indication: Pemphigoid
     Dosage: 500 MILLIGRAM, BID
     Route: 048

REACTIONS (2)
  - Treatment failure [Unknown]
  - Off label use [Unknown]
